FAERS Safety Report 5817499-6 (Version None)
Quarter: 2008Q3

REPORT INFORMATION
  Report Type: 
  Country: None (occurrence: None)
  Receive Date: 20080722
  Receipt Date: 20080716
  Transmission Date: 20090109
  Serious: Yes (Other)
  Sender: FDA-Public Use
  Company Number: US-JNJFOC-20080305119

PATIENT
  Age: 76 Year
  Sex: Male
  Weight: 104.33 kg

DRUGS (15)
  1. TYLENOL (CAPLET) [Suspect]
     Route: 048
  2. TYLENOL (CAPLET) [Suspect]
     Indication: DRUG USE FOR UNKNOWN INDICATION
     Route: 048
  3. LISINOPRIL [Concomitant]
     Dosage: 20/12.5 DAILY
  4. LOPRESSOR [Concomitant]
     Indication: DRUG USE FOR UNKNOWN INDICATION
  5. ZOCOR [Concomitant]
     Indication: BLOOD CHOLESTEROL INCREASED
  6. ZETIA [Concomitant]
     Indication: BLOOD CHOLESTEROL INCREASED
  7. RANITIDINE HCL [Concomitant]
  8. LORATADINE [Concomitant]
  9. AMBIEN [Concomitant]
     Indication: INSOMNIA
  10. ADVAIR DISKUS 100/50 [Concomitant]
     Indication: RESPIRATORY DISORDER
     Dosage: 250/50
  11. COMBIVENT [Concomitant]
     Indication: DYSPNOEA
  12. FLUTICASONE PROPIONATE [Concomitant]
  13. ASPIRIN [Concomitant]
  14. GLUCOSAMINE CHONDROITIN [Concomitant]
     Indication: ARTHRITIS
  15. MUCUS RELIEF [Concomitant]
     Indication: RESPIRATORY TRACT CONGESTION

REACTIONS (1)
  - HAEMATOCHEZIA [None]
